FAERS Safety Report 9278682 (Version 1)
Quarter: 2013Q2

REPORT INFORMATION
  Report Type: Spontaneous
  Country: US (occurrence: US)
  Receive Date: 20130508
  Receipt Date: 20130508
  Transmission Date: 20140414
  Serious: Yes (Other)
  Sender: FDA-Public Use
  Company Number: US-ASTRAZENECA-2013SE30119

PATIENT
  Age: 64 Year
  Sex: Male

DRUGS (3)
  1. SYMBICORT PMDI [Suspect]
     Dosage: TWO TIMES A DAY
     Route: 055
  2. NEXIUM [Suspect]
     Dosage: DAILY
     Route: 048
  3. PRILOSEC [Suspect]
     Route: 048

REACTIONS (2)
  - Prostate cancer [Unknown]
  - Drug ineffective [Unknown]
